FAERS Safety Report 11772131 (Version 1)
Quarter: 2015Q4

REPORT INFORMATION
  Report Type: Spontaneous
  Country: ES (occurrence: ES)
  Receive Date: 20151124
  Receipt Date: 20151124
  Transmission Date: 20160304
  Serious: Yes (Hospitalization)
  Sender: FDA-Public Use
  Company Number: ES-MYLANLABS-2015M1041815

PATIENT

DRUGS (1)
  1. OXALIPLATIN. [Suspect]
     Active Substance: OXALIPLATIN
     Indication: SKIN TEST
     Dosage: 5 MG/ML
     Route: 023

REACTIONS (5)
  - Drug administration error [Recovered/Resolved]
  - Cellulitis [Recovered/Resolved]
  - Necrosis [Recovered/Resolved]
  - Extravasation [Recovered/Resolved]
  - Vessel puncture site reaction [Recovered/Resolved]
